FAERS Safety Report 6843907-8 (Version None)
Quarter: 2010Q3

REPORT INFORMATION
  Report Type: 
  Country: None (occurrence: None)
  Receive Date: 20100715
  Receipt Date: 20100707
  Transmission Date: 20110219
  Serious: Yes (Other)
  Sender: FDA-Public Use
  Company Number: US-ELI_LILLY_AND_COMPANY-US201007002633

PATIENT
  Age: 92 Year
  Sex: Female

DRUGS (2)
  1. HUMALOG [Suspect]
     Indication: DIABETES MELLITUS
  2. LEVEMIR [Concomitant]
     Indication: DIABETES MELLITUS
     Dosage: 50 MG, UNK

REACTIONS (2)
  - CORONARY ARTERY DISEASE [None]
  - HYPOGLYCAEMIC SEIZURE [None]
